FAERS Safety Report 7050896-2 (Version None)
Quarter: 2010Q4

REPORT INFORMATION
  Report Type: 
  Country: None (occurrence: None)
  Receive Date: 20101019
  Receipt Date: 20101007
  Transmission Date: 20110411
  Serious: Yes (Other)
  Sender: FDA-Public Use
  Company Number: US-RB-014269-10

PATIENT
  Age: 72 Year
  Sex: Male

DRUGS (1)
  1. MUCINEX [Suspect]
     Dosage: PRODUCT USED ON AND OFF, BUT ONLY 1 IN A 24 HOUR PERIOD.
     Route: 048
     Dates: start: 20100930

REACTIONS (2)
  - ABNORMAL FAECES [None]
  - FAECES DISCOLOURED [None]
